FAERS Safety Report 23839563 (Version 1)
Quarter: 2024Q2

REPORT INFORMATION
  Report Type: Spontaneous
  Country: CA (occurrence: CA)
  Receive Date: 20240510
  Receipt Date: 20240510
  Transmission Date: 20240715
  Serious: Yes (Hospitalization, Other)
  Sender: FDA-Public Use
  Company Number: CA-AUROBINDO-AUR-APL-2024-021690

PATIENT
  Age: 34 Year
  Sex: Female

DRUGS (9)
  1. PERINDOPRIL [Suspect]
     Active Substance: PERINDOPRIL
     Indication: Product used for unknown indication
     Dosage: UNK
     Route: 065
  2. BOS TAURUS ADRENAL CORTEX CORTICOSTEROIDS [Suspect]
     Active Substance: BOS TAURUS ADRENAL CORTEX CORTICOSTEROIDS
     Indication: Product used for unknown indication
     Dosage: UNK
     Route: 065
  3. RITUXIMAB [Suspect]
     Active Substance: RITUXIMAB
     Indication: Nephropathy
     Dosage: 250 MILLIGRAM
     Route: 042
  4. RITUXIMAB [Suspect]
     Active Substance: RITUXIMAB
     Dosage: 1000 MILLIGRAM
     Route: 042
  5. CANDESARTAN [Concomitant]
     Active Substance: CANDESARTAN
     Indication: Product used for unknown indication
     Dosage: 8 MILLIGRAM
     Route: 065
  6. LASIX [Concomitant]
     Active Substance: FUROSEMIDE
     Indication: Product used for unknown indication
     Dosage: UNK
     Route: 065
  7. PREDNISONE [Concomitant]
     Active Substance: PREDNISONE
     Indication: Product used for unknown indication
     Dosage: 75 MILLIGRAM
     Route: 065
  8. RIFAMPIN [Concomitant]
     Active Substance: RIFAMPIN
     Indication: Product used for unknown indication
     Dosage: UNK
     Route: 065
  9. RUXIENCE [Concomitant]
     Active Substance: RITUXIMAB-PVVR
     Indication: Nephropathy
     Dosage: UNK
     Route: 042

REACTIONS (9)
  - Affective disorder [Recovered/Resolved]
  - Depression [Recovered/Resolved]
  - Drug hypersensitivity [Recovered/Resolved]
  - Dyslipidaemia [Recovered/Resolved]
  - Hypertension [Recovered/Resolved]
  - Latent tuberculosis [Recovered/Resolved]
  - Nephrotic syndrome [Recovered/Resolved]
  - Oedema peripheral [Recovered/Resolved]
  - Laboratory test abnormal [Recovered/Resolved]
